FAERS Safety Report 21149060 (Version 1)
Quarter: 2022Q3

REPORT INFORMATION
  Report Type: Spontaneous
  Country: US (occurrence: US)
  Receive Date: 20220729
  Receipt Date: 20220729
  Transmission Date: 20221026
  Serious: No
  Sender: FDA-Public Use
  Company Number: US-BIOVITRUM-2022US08941

PATIENT
  Age: 13 Year
  Sex: Male

DRUGS (1)
  1. KINERET [Suspect]
     Active Substance: ANAKINRA
     Indication: Pyrexia
     Dosage: 100MG/0.67ML
     Dates: start: 20200125

REACTIONS (6)
  - Glossodynia [Unknown]
  - Syringe issue [Unknown]
  - Needle issue [Unknown]
  - Poor quality device used [Unknown]
  - Product dose omission issue [Unknown]
  - Off label use [Not Recovered/Not Resolved]

NARRATIVE: CASE EVENT DATE: 20200125
